FAERS Safety Report 15897319 (Version 4)
Quarter: 2019Q2

REPORT INFORMATION
  Report Type: Report from Study
  Country: CZ (occurrence: CZ)
  Receive Date: 20190131
  Receipt Date: 20190418
  Transmission Date: 20190711
  Serious: Yes (Death, Hospitalization)
  Sender: FDA-Public Use
  Company Number: CZ-REGENERON PHARMACEUTICALS, INC.-2019-15116

PATIENT

DRUGS (22)
  1. CEMIPLIMAB [Suspect]
     Active Substance: CEMIPLIMAB
     Dosage: 3 MG/KG, QOW
     Route: 042
     Dates: start: 20181123, end: 20181123
  2. GRANEGIS [Concomitant]
     Active Substance: GRANISETRON HYDROCHLORIDE
     Indication: PRODUCT USED FOR UNKNOWN INDICATION
     Dosage: 1 DF, QD
     Route: 048
     Dates: start: 20181207, end: 20190327
  3. HYDROCORTISONE. [Concomitant]
     Active Substance: HYDROCORTISONE
     Indication: PRODUCT USED FOR UNKNOWN INDICATION
     Dosage: UNK UNK, UNK
     Route: 065
  4. UNASYNE  [SULTAMICILLIN] [Concomitant]
     Indication: DRUG THERAPY
     Dosage: 375 MG, QD
     Route: 048
     Dates: start: 20190118, end: 20190123
  5. ERDOMED [Concomitant]
     Active Substance: ERDOSTEINE
     Indication: DRUG THERAPY
     Dosage: 2 DF, QD
     Route: 048
     Dates: start: 20190121, end: 20190125
  6. CALTRATE [Concomitant]
     Active Substance: CALCIUM CARBONATE
     Indication: PRODUCT USED FOR UNKNOWN INDICATION
     Dosage: UNK UNK, UNK
     Route: 065
  7. CEMIPLIMAB [Suspect]
     Active Substance: CEMIPLIMAB
     Indication: PLASMA CELL MYELOMA
     Dosage: 3 MG/KG, QOW
     Route: 042
  8. PARACETAMOL KABI [Concomitant]
     Active Substance: ACETAMINOPHEN
     Indication: PRODUCT USED FOR UNKNOWN INDICATION
     Dosage: UNK UNK, UNK
     Route: 065
  9. BINOCRIT [Concomitant]
     Active Substance: ERYTHROPOIETIN
     Indication: DRUG THERAPY
     Dosage: 40000 IU, QD
     Route: 058
     Dates: start: 20190104, end: 20190327
  10. ISATUXIMAB [Suspect]
     Active Substance: ISATUXIMAB
     Indication: PLASMA CELL MYELOMA
     Dosage: 10 MG/KG
     Route: 042
     Dates: start: 20190104, end: 20190104
  11. ZOMETA [Concomitant]
     Active Substance: ZOLEDRONIC ACID
     Indication: PROPHYLAXIS
     Dosage: UNK UNK, UNK
     Route: 042
     Dates: start: 20160628, end: 20190327
  12. BELOGENT [Concomitant]
     Indication: DRUG THERAPY
     Dosage: 2 APPLICATION, QD
     Route: 061
     Dates: start: 20190121, end: 20190125
  13. KODEIN [Concomitant]
     Active Substance: CODEINE PHOSPHATE
     Indication: DRUG THERAPY
     Dosage: 1 DF, QD
     Route: 048
     Dates: start: 20190121, end: 20190125
  14. ZARZIO [Concomitant]
     Active Substance: FILGRASTIM
     Indication: PROPHYLAXIS
     Dosage: UNK UNK, UNK
     Route: 058
     Dates: start: 20181130, end: 20190327
  15. TAZOCIN [Concomitant]
     Active Substance: PIPERACILLIN SODIUM\TAZOBACTAM SODIUM
     Indication: PRODUCT USED FOR UNKNOWN INDICATION
     Dosage: UNK UNK, UNK
     Route: 065
  16. ISATUXIMAB [Suspect]
     Active Substance: ISATUXIMAB
     Dosage: 10 MG/KG, QW
     Route: 042
     Dates: start: 20181123, end: 20181123
  17. HELICID                            /00661201/ [Concomitant]
     Active Substance: OMEPRAZOLE
     Indication: PROPHYLAXIS
     Dosage: UNK UNK, UNK
     Route: 048
     Dates: start: 20181123, end: 20190327
  18. MILURIT [Concomitant]
     Active Substance: ALLOPURINOL
     Indication: PROPHYLAXIS
     Dosage: UNK UNK, UNK
     Route: 048
     Dates: start: 20181123, end: 20190327
  19. BISEPTOL [Concomitant]
     Active Substance: SULFAMETHOXAZOLE\TRIMETHOPRIM
     Indication: PROPHYLAXIS
     Dosage: UNK UNK, UNK
     Route: 048
     Dates: start: 20181123, end: 20190327
  20. FRAXIPARINE [Concomitant]
     Active Substance: NADROPARIN CALCIUM
     Indication: PROPHYLAXIS
     Dosage: UNK UNK, UNK
     Route: 065
  21. SOLU-MEDROL [Concomitant]
     Active Substance: METHYLPREDNISOLONE SODIUM SUCCINATE
     Indication: PRODUCT USED FOR UNKNOWN INDICATION
     Dosage: UNK UNK, UNK
     Route: 065
  22. FUROSEMIDE. [Concomitant]
     Active Substance: FUROSEMIDE
     Indication: PRODUCT USED FOR UNKNOWN INDICATION
     Dosage: UNK UNK, UNK
     Route: 065

REACTIONS (1)
  - Pulmonary embolism [Recovered/Resolved]

NARRATIVE: CASE EVENT DATE: 20190123
